FAERS Safety Report 12138118 (Version 3)
Quarter: 2016Q1

REPORT INFORMATION
  Report Type: Spontaneous
  Country: US (occurrence: US)
  Receive Date: 20160302
  Receipt Date: 20160310
  Transmission Date: 20160526
  Serious: Yes (Other)
  Sender: FDA-Public Use
  Company Number: US-ACTAVIS-2016-04632

PATIENT
  Age: 75 Year
  Sex: Male
  Weight: 74.6 kg

DRUGS (2)
  1. MIRTAZAPINE (ACTAVIS LABORATORIES FL) [Suspect]
     Active Substance: MIRTAZAPINE
     Indication: PRODUCT USED FOR UNKNOWN INDICATION
     Dosage: 30 MG, DAILY
     Route: 048
  2. MIRTAZAPINE (ACTAVIS LABORATORIES FL) [Suspect]
     Active Substance: MIRTAZAPINE
     Dosage: 15 MG, DAILY
     Route: 048

REACTIONS (3)
  - Hypertriglyceridaemia [Recovering/Resolving]
  - Hyperglycaemia [Recovering/Resolving]
  - Weight increased [Recovering/Resolving]
